FAERS Safety Report 22333175 (Version 1)
Quarter: 2023Q2

REPORT INFORMATION
  Report Type: Spontaneous
  Country: US (occurrence: None)
  Receive Date: 20230516
  Receipt Date: 20230516
  Transmission Date: 20230722
  Serious: No
  Sender: FDA-Public Use
  Company Number: None

PATIENT
  Age: 53 Year
  Sex: Female

DRUGS (3)
  1. HUMIRA [Suspect]
     Active Substance: ADALIMUMAB
     Indication: Hidradenitis
     Dosage: INJECT 80MG SUBCUTANEOUSLY EVERY 2 WEEKS AS DIRECTED.
     Route: 058
     Dates: start: 202303
  2. MELOXICAM [Suspect]
     Active Substance: MELOXICAM
  3. NAPROXEN [Suspect]
     Active Substance: NAPROXEN

REACTIONS (2)
  - Device defective [None]
  - Therapy interrupted [None]
